FAERS Safety Report 10566575 (Version 2)
Quarter: 2015Q1

REPORT INFORMATION
  Report Type: Spontaneous
  Country: FR (occurrence: FR)
  Receive Date: 20141105
  Receipt Date: 20150128
  Transmission Date: 20150720
  Serious: Yes (Other)
  Sender: FDA-Public Use
  Company Number: FR-PFIZER INC-2014301026

PATIENT
  Age: 84 Year
  Sex: Female

DRUGS (2)
  1. XALATAN [Suspect]
     Active Substance: LATANOPROST
     Dosage: UNK
     Dates: start: 200907
  2. DOLIPRANE [Suspect]
     Active Substance: ACETAMINOPHEN

REACTIONS (10)
  - Cataract [Unknown]
  - Photophobia [Unknown]
  - Hepatic pain [Unknown]
  - Visual impairment [Unknown]
  - Dysgeusia [Unknown]
  - Visual field defect [Unknown]
  - Ocular discomfort [Unknown]
  - Oedema [Unknown]
  - Coordination abnormal [Unknown]
  - Drug intolerance [Unknown]

NARRATIVE: CASE EVENT DATE: 201206
